FAERS Safety Report 15051353 (Version 1)
Quarter: 2018Q2

REPORT INFORMATION
  Report Type: Spontaneous
  Country: DE (occurrence: DE)
  Receive Date: 20180622
  Receipt Date: 20180622
  Transmission Date: 20180711
  Serious: Yes (Other)
  Sender: FDA-Public Use
  Company Number: DE-PFIZER INC-2018246418

PATIENT
  Age: 88 Year
  Sex: Female

DRUGS (1)
  1. DILZEM [Suspect]
     Active Substance: DILTIAZEM
     Dosage: UNK

REACTIONS (2)
  - Dysphagia [Unknown]
  - Choking [Unknown]
